FAERS Safety Report 20222473 (Version 1)
Quarter: 2021Q4

REPORT INFORMATION
  Report Type: Spontaneous
  Country: US (occurrence: US)
  Receive Date: 20211223
  Receipt Date: 20211223
  Transmission Date: 20220303
  Serious: Yes (Other)
  Sender: FDA-Public Use
  Company Number: US-BAYER-2021A271246

PATIENT
  Age: 57 Year
  Sex: Female

DRUGS (1)
  1. ALKA-SELTZER PLUS MAXIMUM STRENGTH NIGHT COLD AND FLU POWERMAX GELS [Suspect]
     Active Substance: ACETAMINOPHEN\DEXTROMETHORPHAN HYDROBROMIDE\DOXYLAMINE SUCCINATE\PHENYLEPHRINE HYDROCHLORIDE
     Indication: Nasopharyngitis
     Dosage: 2 DF, Q8HR
     Route: 048
     Dates: start: 20211219, end: 20211220

REACTIONS (3)
  - Foreign body in throat [Not Recovered/Not Resolved]
  - Product use complaint [None]
  - Intentional product use issue [Unknown]

NARRATIVE: CASE EVENT DATE: 20211219
